FAERS Safety Report 8324345-8 (Version None)
Quarter: 2012Q2

REPORT INFORMATION
  Report Type: 
  Country: None (occurrence: None)
  Receive Date: 20120430
  Receipt Date: 20120430
  Transmission Date: 20120825
  Serious: Yes (Hospitalization)
  Sender: FDA-Public Use
  Company Number: None

PATIENT
  Age: 79 Year
  Sex: Male

DRUGS (4)
  1. PROSCAR [Concomitant]
  2. TRAMADOL HCL [Concomitant]
  3. REVLIMID [Suspect]
     Indication: MULTIPLE MYELOMA
     Dosage: 10MG QD X21D/28D ORALLY
     Route: 048
     Dates: start: 20090301, end: 20120401
  4. ZOCOR [Concomitant]

REACTIONS (1)
  - CEREBROVASCULAR ACCIDENT [None]
